FAERS Safety Report 9185950 (Version 1)
Quarter: 2013Q1

REPORT INFORMATION
  Report Type: Spontaneous
  Country: US (occurrence: US)
  Receive Date: 20130325
  Receipt Date: 20130325
  Transmission Date: 20140127
  Serious: No
  Sender: FDA-Public Use
  Company Number: US-TEVA-393510USA

PATIENT
  Age: 36 Year
  Sex: Female
  Weight: 64.92 kg

DRUGS (8)
  1. NUVIGIL [Suspect]
     Indication: NARCOLEPSY
     Route: 048
     Dates: start: 20130312
  2. NUVIGIL [Suspect]
     Dosage: 100 MILLIGRAM DAILY;
     Route: 048
     Dates: start: 20130318
  3. ADDERALL [Concomitant]
     Dosage: 40MG IN AM, 20MG IN PM
     Route: 048
  4. SIMVASTATIN [Concomitant]
     Indication: BLOOD CHOLESTEROL INCREASED
     Dosage: 20 MILLIGRAM DAILY;
     Route: 048
  5. CLONAZEPAM [Concomitant]
     Dosage: 4 MILLIGRAM DAILY;
     Route: 048
  6. RISPERDAL [Concomitant]
     Dosage: 6 MILLIGRAM DAILY;
     Route: 048
  7. WARFARIN [Concomitant]
     Indication: COAGULOPATHY
     Dosage: 5 MILLIGRAM DAILY;
     Route: 048
  8. TRAZODONE [Concomitant]
     Dosage: 100 MILLIGRAM DAILY;
     Route: 048

REACTIONS (5)
  - Feeling abnormal [Not Recovered/Not Resolved]
  - Somnolence [Unknown]
  - Eye colour change [Recovered/Resolved]
  - Drug ineffective [Unknown]
  - Underdose [Unknown]
